FAERS Safety Report 5197916-8 (Version None)
Quarter: 2007Q1

REPORT INFORMATION
  Report Type: 
  Country: None (occurrence: None)
  Receive Date: 20070104
  Receipt Date: 20061229
  Transmission Date: 20070707
  Serious: Yes (Hospitalization, Disabling)
  Sender: FDA-Public Use
  Company Number: AU-ELI_LILLY_AND_COMPANY-AU200603006170

PATIENT
  Age: 23 Year
  Sex: Male

DRUGS (2)
  1. ZYPREXA [Suspect]
     Indication: SCHIZOPHRENIA, PARANOID TYPE
     Dosage: 10 MG, 2/D
     Dates: start: 19990805, end: 20030220
  2. SERTRALINE [Concomitant]
     Indication: INTENTIONAL SELF-INJURY

REACTIONS (11)
  - ANXIETY [None]
  - DEPRESSION [None]
  - DIABETES MELLITUS INSULIN-DEPENDENT [None]
  - DIABETIC KETOACIDOSIS [None]
  - EYE INFECTION [None]
  - HAEMATURIA [None]
  - HYPERHIDROSIS [None]
  - INSOMNIA [None]
  - SCHIZOPHRENIFORM DISORDER [None]
  - SELF INJURIOUS BEHAVIOUR [None]
  - WEIGHT INCREASED [None]
